FAERS Safety Report 18381896 (Version 1)
Quarter: 2020Q4

REPORT INFORMATION
  Report Type: Spontaneous
  Country: US (occurrence: US)
  Receive Date: 20201013
  Receipt Date: 20201013
  Transmission Date: 20210114
  Serious: Yes (Hospitalization)
  Sender: FDA-Public Use
  Company Number: None

PATIENT
  Age: 65 Year
  Sex: Female

DRUGS (10)
  1. XANAX [Concomitant]
     Active Substance: ALPRAZOLAM
  2. LIPITOR [Concomitant]
     Active Substance: ATORVASTATIN CALCIUM
  3. COZAAR [Concomitant]
     Active Substance: LOSARTAN POTASSIUM
  4. GLATIRAMER 40MG [Suspect]
     Active Substance: GLATIRAMER
     Indication: MULTIPLE SCLEROSIS
     Route: 058
     Dates: start: 20150608
  5. MYRBETRIQ [Concomitant]
     Active Substance: MIRABEGRON
  6. ATENOLOL. [Concomitant]
     Active Substance: ATENOLOL
  7. ZANAFLEX [Concomitant]
     Active Substance: TIZANIDINE HYDROCHLORIDE
  8. ESTROGEL [Concomitant]
     Active Substance: ESTRADIOL
  9. MAXZIDE-25 [Concomitant]
     Active Substance: HYDROCHLOROTHIAZIDE\TRIAMTERENE
  10. AMANTADINE. [Concomitant]
     Active Substance: AMANTADINE HYDROCHLORIDE

REACTIONS (1)
  - Hip arthroplasty [None]

NARRATIVE: CASE EVENT DATE: 20200922
